FAERS Safety Report 5870663-2 (Version None)
Quarter: 2008Q3

REPORT INFORMATION
  Report Type: 
  Country: None (occurrence: None)
  Receive Date: 20080904
  Receipt Date: 20080822
  Transmission Date: 20090109
  Serious: Yes (Hospitalization)
  Sender: FDA-Public Use
  Company Number: ES-ELI_LILLY_AND_COMPANY-ES200808004816

PATIENT
  Sex: Female

DRUGS (3)
  1. GEMCITABINE HCL [Suspect]
     Indication: PANCREATIC CARCINOMA
     Dosage: 1000 MG/M2, ONCE PER WEEK
     Route: 042
     Dates: start: 20080715, end: 20080729
  2. PLACEBO [Suspect]
     Indication: PANCREATIC CARCINOMA
     Dosage: 5 MG, 2/D
     Route: 048
     Dates: start: 20080715, end: 20080728
  3. PLACEBO [Suspect]
     Dosage: 7 MG, 2/D
     Route: 048
     Dates: start: 20080729, end: 20080806

REACTIONS (1)
  - GASTROINTESTINAL FISTULA [None]
